FAERS Safety Report 12692955 (Version 2)
Quarter: 2016Q4

REPORT INFORMATION
  Report Type: Report from Study
  Country: BR (occurrence: BR)
  Receive Date: 20160829
  Receipt Date: 20161102
  Transmission Date: 20170207
  Serious: Yes (Hospitalization, Other)
  Sender: FDA-Public Use
  Company Number: PHHY2016BR117041

PATIENT
  Sex: Male
  Weight: 70 kg

DRUGS (7)
  1. GALVUS [Suspect]
     Active Substance: VILDAGLIPTIN
     Dosage: 1 DF, (IN FASTING IN THE MORNING)
     Route: 048
  2. DIOVAN HCT [Suspect]
     Active Substance: HYDROCHLOROTHIAZIDE\VALSARTAN
     Indication: HYPERTENSION
     Dosage: 1 DF (HYDROCHLOROTHIAZIDE 12.5 MG, VALSARTAN 160 MG), (IN THE MORNING)
     Route: 048
     Dates: start: 2015
  3. GALVUS [Suspect]
     Active Substance: VILDAGLIPTIN
     Indication: BLOOD GLUCOSE ABNORMAL
     Dosage: 2 DF, UNK
     Route: 048
  4. EXFORGE HCT [Suspect]
     Active Substance: AMLODIPINE BESYLATE\HYDROCHLOROTHIAZIDE\VALSARTAN
     Dosage: 0.5 DF, BID (HALF TABLET MORNING AND HALF TABLET AT NIGHT)
     Route: 048
  5. SELOZOK [Concomitant]
     Active Substance: METOPROLOL SUCCINATE
     Indication: PRODUCT USED FOR UNKNOWN INDICATION
     Dosage: 25 MG, UNK
     Route: 065
  6. AMLODIPINE [Concomitant]
     Active Substance: AMLODIPINE BESYLATE
     Indication: PRODUCT USED FOR UNKNOWN INDICATION
     Route: 065
  7. EXFORGE HCT [Suspect]
     Active Substance: AMLODIPINE BESYLATE\HYDROCHLOROTHIAZIDE\VALSARTAN
     Indication: HYPERTENSION
     Dosage: 1 DF (AMLODIPINE 5 MG, HYDROCHLOROTHIAZIDE 12.5 MG, VALSARTAN 160 MG), (IN THE MORNING)
     Route: 048
     Dates: start: 201607

REACTIONS (14)
  - Diabetes mellitus [Unknown]
  - Arrhythmia [Unknown]
  - Pruritus [Unknown]
  - Blood pressure decreased [Unknown]
  - Hypersensitivity [Recovered/Resolved]
  - Inappropriate schedule of drug administration [Unknown]
  - Fall [Unknown]
  - Wrong technique in product usage process [Unknown]
  - Blood pressure fluctuation [Unknown]
  - Syncope [Unknown]
  - Loss of consciousness [Unknown]
  - Blood glucose increased [Unknown]
  - Drug prescribing error [Unknown]
  - Blood pressure increased [Recovered/Resolved]
